FAERS Safety Report 7954443-X (Version None)
Quarter: 2011Q4

REPORT INFORMATION
  Report Type: 
  Country: None (occurrence: None)
  Receive Date: 20111202
  Receipt Date: 20111123
  Transmission Date: 20120403
  Serious: Yes (Other)
  Sender: FDA-Public Use
  Company Number: FR-GLAXOSMITHKLINE-B0765148A

PATIENT
  Sex: Female

DRUGS (2)
  1. KERLONE [Concomitant]
     Indication: HYPERTENSION
     Dosage: 1TAB PER DAY
     Route: 048
  2. MALARONE [Suspect]
     Indication: MALARIA PROPHYLAXIS
     Dosage: 1TAB PER DAY
     Route: 048
     Dates: start: 20111030, end: 20111115

REACTIONS (7)
  - PARAESTHESIA [None]
  - HYPERSENSITIVITY [None]
  - ABDOMINAL PAIN [None]
  - RASH [None]
  - PRURITUS [None]
  - ERYTHEMA [None]
  - SWELLING FACE [None]
